FAERS Safety Report 4642334-1 (Version None)
Quarter: 2005Q2

REPORT INFORMATION
  Report Type: 
  Country: None (occurrence: None)
  Receive Date: 20050421
  Receipt Date: 20050421
  Transmission Date: 20051028
  Serious: Yes (Life-Threatening, Hospitalization)
  Sender: FDA-Public Use
  Company Number: None

PATIENT
  Age: 40 Year
  Sex: Male
  Weight: 51 kg

DRUGS (2)
  1. CETACAINE    14%     CETYLITE INDUSTRIES [Suspect]
     Indication: ECHOCARDIOGRAM
     Dosage: GIVEN ONCE   TOPICAL
     Route: 061
     Dates: start: 20050405, end: 20050405
  2. CETACAINE    14%     CETYLITE INDUSTRIES [Suspect]
     Indication: PREOPERATIVE CARE
     Dosage: GIVEN ONCE   TOPICAL
     Route: 061
     Dates: start: 20050405, end: 20050405

REACTIONS (1)
  - METHAEMOGLOBINAEMIA [None]
